APPROVED DRUG PRODUCT: APIXABAN
Active Ingredient: APIXABAN
Strength: 2.5MG
Dosage Form/Route: TABLET;ORAL
Application: A209898 | Product #001 | TE Code: AB
Applicant: REGCON HOLDINGS LLC
Approved: Sep 11, 2020 | RLD: No | RS: No | Type: RX